FAERS Safety Report 6609367-7 (Version None)
Quarter: 2010Q1

REPORT INFORMATION
  Report Type: 
  Country: None (occurrence: None)
  Receive Date: 20100224
  Receipt Date: 20100216
  Transmission Date: 20100710
  Serious: Yes (Other)
  Sender: FDA-Public Use
  Company Number: 1000011845

PATIENT
  Age: 43 Year
  Sex: Female

DRUGS (5)
  1. LEXAPRO [Suspect]
     Indication: ANXIETY
     Dosage: 10 MG (10 MG,ONCE), ORAL
     Route: 048
     Dates: start: 20100203, end: 20100203
  2. LAMICTAL (200 MILLIGRAM, TABLETS) [Concomitant]
  3. ARICEPT (1 MILLIGRAM, TABLETS) [Concomitant]
  4. XANAX (1 MILLIGRAM, TABLETS) [Concomitant]
  5. KEPPRA (500 MILLIGRAM, TABLETS) [Concomitant]

REACTIONS (4)
  - CONFUSIONAL STATE [None]
  - CONVULSION [None]
  - DIZZINESS [None]
  - LETHARGY [None]
